FAERS Safety Report 7442575-4 (Version None)
Quarter: 2011Q2

REPORT INFORMATION
  Report Type: 
  Country: None (occurrence: None)
  Receive Date: 20110428
  Receipt Date: 20110422
  Transmission Date: 20111010
  Serious: Yes (Hospitalization)
  Sender: FDA-Public Use
  Company Number: US-AMGEN-USASP2011021413

PATIENT
  Sex: Male

DRUGS (4)
  1. ETOPOSIDE [Concomitant]
  2. BLEOMYCIN [Concomitant]
  3. PLATINUM [Concomitant]
  4. NEULASTA [Suspect]
     Indication: CHEMOTHERAPY
     Dosage: UNK

REACTIONS (1)
  - PULMONARY TOXICITY [None]
